FAERS Safety Report 7953533-5 (Version None)
Quarter: 2011Q4

REPORT INFORMATION
  Report Type: 
  Country: None (occurrence: None)
  Receive Date: 20111202
  Receipt Date: 20111128
  Transmission Date: 20120403
  Serious: Yes (Other)
  Sender: FDA-Public Use
  Company Number: JP-PFIZER INC-2011290006

PATIENT

DRUGS (1)
  1. SOLU-CORTEF [Suspect]

REACTIONS (1)
  - SHOCK [None]
